FAERS Safety Report 6973493-3 (Version None)
Quarter: 2010Q3

REPORT INFORMATION
  Report Type: 
  Country: None (occurrence: None)
  Receive Date: 20100909
  Receipt Date: 20100907
  Transmission Date: 20110219
  Serious: Yes (Hospitalization, Other)
  Sender: FDA-Public Use
  Company Number: US-BRISTOL-MYERS SQUIBB COMPANY-15274988

PATIENT
  Age: 75 Year
  Sex: Female
  Weight: 72 kg

DRUGS (8)
  1. GLUCOPHAGE [Suspect]
     Dosage: TAKEN FOR 18YRS
  2. GLUCOTROL XL [Concomitant]
  3. JANUVIA [Concomitant]
  4. AVAPRO [Concomitant]
     Dosage: STARTED 10 YRS AGE
  5. THYROID SUPPLEMENT [Concomitant]
  6. ASPIRIN [Concomitant]
  7. LIPITOR [Concomitant]
  8. NEURONTIN [Concomitant]

REACTIONS (3)
  - DRUG INEFFECTIVE [None]
  - PULMONARY MASS [None]
  - STENT PLACEMENT [None]
